FAERS Safety Report 8902110 (Version 2)
Quarter: 2012Q4

REPORT INFORMATION
  Report Type: 
  Country: FR (occurrence: FR)
  Receive Date: 20121112
  Receipt Date: 20121214
  Transmission Date: 20130627
  Serious: Yes (Other)
  Sender: FDA-Public Use
  Company Number: FR-GENZYME-MOZO-1000768

PATIENT
  Age: 61 Year
  Sex: Female
  Weight: 66 kg

DRUGS (2)
  1. MOZOBIL [Suspect]
     Indication: HAEMATOPOIETIC STEM CELL MOBILISATION
     Dosage: UNK
     Route: 058
     Dates: start: 20120503, end: 20120503
  2. GRANOCYTE [Concomitant]
     Indication: MULTIPLE MYELOMA
     Dosage: 34 M, bid
     Route: 058
     Dates: start: 20120427, end: 201205

REACTIONS (1)
  - Hypersensitivity [Recovered/Resolved]
